FAERS Safety Report 23788448 (Version 1)
Quarter: 2024Q2

REPORT INFORMATION
  Report Type: Other
  Country: GB (occurrence: GB)
  Receive Date: 20240426
  Receipt Date: 20240426
  Transmission Date: 20240716
  Serious: Yes (Disabling)
  Sender: FDA-Public Use
  Company Number: None

PATIENT
  Age: 31 Year
  Sex: Female
  Weight: 67 kg

DRUGS (6)
  1. FLUOXETINE [Suspect]
     Active Substance: FLUOXETINE HYDROCHLORIDE
     Indication: Ill-defined disorder
     Dosage: UNK
     Route: 065
     Dates: start: 20180416
  2. AMITRIPTYLINE HYDROCHLORIDE [Concomitant]
     Active Substance: AMITRIPTYLINE HYDROCHLORIDE
     Indication: Ill-defined disorder
     Dosage: UNK, AT BED TIME (TAKE TWO TABLETS EACH NIGHT)
     Route: 065
     Dates: start: 20220713
  3. MIRTAZAPINE [Concomitant]
     Active Substance: MIRTAZAPINE
     Indication: Ill-defined disorder
     Dosage: UNK, QD (TAKE ONE EACH EVENING FOR DEPRESSION)
     Route: 065
     Dates: start: 20240419
  4. PENICILLIN V [Concomitant]
     Active Substance: PENICILLIN V
     Indication: Ill-defined disorder
     Dosage: UNK, QID (TAKE TWO TABLETS FOUR TIMES A DAY)
     Route: 065
     Dates: start: 20240225, end: 20240301
  5. PROPRANOLOL [Concomitant]
     Active Substance: PROPRANOLOL HYDROCHLORIDE
     Indication: Ill-defined disorder
     Dosage: UNK, BID (ONE TO BE TAKEN TWICE DAILY ANXIETY)
     Route: 065
     Dates: start: 20240414
  6. NABIXIMOLS [Concomitant]
     Active Substance: NABIXIMOLS
     Indication: Ill-defined disorder
     Dosage: UNK (*********HOSPITAL ONLY*******************)
     Route: 065
     Dates: start: 20231101

REACTIONS (1)
  - Adverse drug reaction [Recovered/Resolved]

NARRATIVE: CASE EVENT DATE: 20180419
